FAERS Safety Report 8296628-1 (Version None)
Quarter: 2012Q2

REPORT INFORMATION
  Report Type: 
  Country: None (occurrence: None)
  Receive Date: 20120418
  Receipt Date: 20120418
  Transmission Date: 20120825
  Serious: Yes (Other)
  Sender: FDA-Public Use
  Company Number: None

PATIENT
  Age: 40 Year
  Sex: Female

DRUGS (4)
  1. DEPAKOTE [Concomitant]
  2. SEROQUEL [Concomitant]
     Indication: SLEEP DISORDER
     Dosage: 50MG
     Route: 048
     Dates: start: 20100616, end: 20120416
  3. WELLBUTRIN [Suspect]
     Indication: CARDIAC FAILURE
     Dosage: 25 MG
     Route: 048
     Dates: start: 20100616, end: 20101128
  4. WELLBUTRIN [Concomitant]

REACTIONS (1)
  - UNEVALUABLE EVENT [None]
